FAERS Safety Report 10378157 (Version 1)
Quarter: 2014Q3

REPORT INFORMATION
  Report Type: Spontaneous
  Country: US (occurrence: None)
  Receive Date: 20140811
  Receipt Date: 20140811
  Transmission Date: 20150326
  Serious: Yes (Hospitalization)
  Sender: FDA-Public Use
  Company Number: None

PATIENT
  Age: 69 Year
  Sex: Male
  Weight: 117.94 kg

DRUGS (20)
  1. FINASTERIDE. [Concomitant]
     Active Substance: FINASTERIDE
  2. ABRAXANE [Suspect]
     Active Substance: PACLITAXEL
     Indication: PANCREATIC CARCINOMA
     Route: 042
     Dates: start: 20140711
  3. LEUCOVORIN [Concomitant]
     Active Substance: LEUCOVORIN
  4. ACETAMINOPHEN. [Concomitant]
     Active Substance: ACETAMINOPHEN
  5. TAMSULOSIN [Concomitant]
     Active Substance: TAMSULOSIN
  6. COLCHICINE. [Concomitant]
     Active Substance: COLCHICINE
  7. MAGNESIUM OXIDE. [Concomitant]
     Active Substance: MAGNESIUM OXIDE
  8. ALBUTEROL. [Concomitant]
     Active Substance: ALBUTEROL
  9. OXALIPLATIN. [Suspect]
     Active Substance: OXALIPLATIN
     Indication: PANCREATIC CARCINOMA
     Route: 042
     Dates: start: 20140711
  10. 5-FU [Concomitant]
     Active Substance: FLUOROURACIL
  11. OXYCODONE [Concomitant]
     Active Substance: OXYCODONE
  12. COLACE [Concomitant]
     Active Substance: DOCUSATE SODIUM
  13. PROCHLORPERAZINE MALEATE. [Concomitant]
     Active Substance: PROCHLORPERAZINE MALEATE
  14. CREON [Concomitant]
     Active Substance: PANCRELIPASE AMYLASE\PANCRELIPASE LIPASE\PANCRELIPASE PROTEASE
  15. MORPHINE (IMMEDIATE RELEASE) [Concomitant]
  16. NACL [Concomitant]
     Active Substance: SODIUM CHLORIDE
  17. VITAMIN D-3 [Concomitant]
  18. MULTIVITAMIN [Concomitant]
     Active Substance: VITAMINS
  19. COUMADIN [Concomitant]
     Active Substance: WARFARIN SODIUM
  20. PREDNISONE. [Concomitant]
     Active Substance: PREDNISONE

REACTIONS (2)
  - Rotator cuff syndrome [None]
  - Musculoskeletal pain [None]

NARRATIVE: CASE EVENT DATE: 20140730
